FAERS Safety Report 15716010 (Version 1)
Quarter: 2018Q4

REPORT INFORMATION
  Report Type: Spontaneous
  Country: CH (occurrence: CH)
  Receive Date: 20181213
  Receipt Date: 20181213
  Transmission Date: 20190205
  Serious: Yes (Hospitalization, Other)
  Sender: FDA-Public Use
  Company Number: CH-BRISTOL-MYERS SQUIBB COMPANY-BMS-2018-115061

PATIENT
  Age: 49 Year
  Sex: Male

DRUGS (10)
  1. KLACID                             /00984601/ [Suspect]
     Active Substance: CLARITHROMYCIN
     Indication: PRODUCT USED FOR UNKNOWN INDICATION
     Dosage: IL FARMACO ? STATO AGGIUNTO ALLA TERAPIA ANTIBIOTICA IL 12.11.2018. 500 MG ENDOVENA UNA VOLTA AL ...
     Route: 041
     Dates: start: 20181112, end: 20181113
  2. QUETIAPIN SANDOZ [Concomitant]
     Active Substance: QUETIAPINE
     Indication: PRODUCT USED FOR UNKNOWN INDICATION
     Dosage: 50 MG, UNK
     Route: 048
  3. KETALGIN (METHADONE) [Concomitant]
     Active Substance: METHADONE HYDROCHLORIDE
     Indication: PRODUCT USED FOR UNKNOWN INDICATION
     Dosage: 10 MG, UNK
     Route: 048
  4. LEVETIRACETAM DESITIN [Concomitant]
     Active Substance: LEVETIRACETAM
     Indication: PRODUCT USED FOR UNKNOWN INDICATION
     Dosage: 500 MG, UNK
     Route: 048
  5. PALLADON [Concomitant]
     Active Substance: HYDROMORPHONE
     Indication: PRODUCT USED FOR UNKNOWN INDICATION
     Dosage: 2.6 MG, UNK
     Route: 048
  6. PREGABALIN PFIZER [Concomitant]
     Active Substance: PREGABALIN
     Indication: PRODUCT USED FOR UNKNOWN INDICATION
     Dosage: 300 MG, UNK
     Route: 048
  7. PIPERACILLINA E TAZOBACTAM TEVA [Suspect]
     Active Substance: PIPERACILLIN SODIUM\TAZOBACTAM SODIUM
     Indication: PRODUCT USED FOR UNKNOWN INDICATION
     Dosage: 4.5G IN ENDOVENA 3XDIE. A PARTIRE DAL 5.11.2018 PER CURARE LA GI? PRESENTE POLMONITE NOSOCOMIALE....
     Route: 041
     Dates: start: 20181105, end: 20181113
  8. RIVOTRIL [Concomitant]
     Active Substance: CLONAZEPAM
     Indication: PRODUCT USED FOR UNKNOWN INDICATION
     Dosage: 0.5 MG, UNK
     Route: 048
  9. OPDIVO [Suspect]
     Active Substance: NIVOLUMAB
     Indication: PRODUCT USED FOR UNKNOWN INDICATION
     Dosage: NON ? NOTO IL DOSAGGIO. UN CICLO AD INFUSIONE DI 30 MIN OGNI 15 GIORNI. LA TERAPIA ? INIZIATA AL ...
     Route: 041
     Dates: start: 20181025
  10. VANCOCIN [Suspect]
     Active Substance: VANCOMYCIN HYDROCHLORIDE
     Indication: PRODUCT USED FOR UNKNOWN INDICATION
     Dosage: 500 MG 2XDIE A PARTIRE DAL 06.11.2018 VISTA LA PERSISTENZA DEL PAZIENTE FEBBRILE, NEL SOSPETTO DI...
     Route: 041
     Dates: start: 20181106, end: 20181113

REACTIONS (4)
  - Liver disorder [Unknown]
  - Hepatic enzyme increased [Recovering/Resolving]
  - Dysphagia [Unknown]
  - Drug-induced liver injury [Recovering/Resolving]

NARRATIVE: CASE EVENT DATE: 20181112
